FAERS Safety Report 8481897 (Version 2)
Quarter: 2012Q4

REPORT INFORMATION
  Report Type: Report from Study
  Country: LV (occurrence: LV)
  Receive Date: 20120329
  Receipt Date: 20121226
  Transmission Date: 20130627
  Serious: Yes (Hospitalization)
  Sender: FDA-Public Use
  Company Number: LV-JNJFOC-20120310988

PATIENT
  Age: 27 Year
  Sex: Female
  Weight: 65.2 kg

DRUGS (12)
  1. PALIPERIDONE PALMITATE [Suspect]
     Indication: SCHIZOPHRENIA
     Route: 030
     Dates: start: 20120209
  2. PALIPERIDONE PALMITATE [Suspect]
     Indication: SCHIZOPHRENIA
     Route: 030
     Dates: start: 20120315
  3. HALOPERIDOL [Concomitant]
     Indication: SCHIZOPHRENIFORM DISORDER
     Dates: start: 20120105, end: 20120209
  4. HALOPERIDOL [Concomitant]
     Indication: SCHIZOPHRENIFORM DISORDER
     Dates: start: 20120210, end: 20120318
  5. DIAZEPAM [Concomitant]
     Indication: ANXIETY
     Dates: start: 20120105, end: 20120318
  6. DIAZEPAM [Concomitant]
     Indication: ANXIETY
     Dates: start: 20120319, end: 20120319
  7. DIAZEPAM [Concomitant]
     Indication: ANXIETY
     Dates: start: 20120322
  8. DIAZEPAM [Concomitant]
     Indication: INSOMNIA
     Dates: start: 20120322
  9. DIAZEPAM [Concomitant]
     Indication: INSOMNIA
     Dates: start: 20120105, end: 20120318
  10. DIAZEPAM [Concomitant]
     Indication: INSOMNIA
     Dates: start: 20120319, end: 20120319
  11. CYCLODOL [Concomitant]
     Indication: EXTRAPYRAMIDAL DISORDER
     Dates: start: 20120105
  12. TRUXAL [Concomitant]
     Indication: INSOMNIA
     Dates: start: 20120105

REACTIONS (1)
  - Anxiety [Recovered/Resolved]
